FAERS Safety Report 10554600 (Version 1)
Quarter: 2014Q4

REPORT INFORMATION
  Report Type: Spontaneous
  Country: ES (occurrence: ES)
  Receive Date: 20141030
  Receipt Date: 20141030
  Transmission Date: 20150529
  Serious: Yes (Hospitalization)
  Sender: FDA-Public Use
  Company Number: ES-009507513-1410ESP014918

PATIENT
  Age: 25 Year
  Sex: Male

DRUGS (5)
  1. GABAPENTINA NORMON [Suspect]
     Active Substance: GABAPENTIN
     Indication: NEURALGIA
     Dosage: 300 MG THREE TIMES DAILY
     Route: 065
     Dates: start: 20140729, end: 20140806
  2. DICLOFENAC [Suspect]
     Active Substance: DICLOFENAC
     Indication: PRODUCT USED FOR UNKNOWN INDICATION
     Dosage: UNK
     Route: 065
     Dates: start: 20140726, end: 20140806
  3. TRYPTIZOL [Suspect]
     Active Substance: AMITRIPTYLINE HYDROCHLORIDE
     Indication: NEURALGIA
     Dosage: DAILY DOSE 10 MG
     Route: 065
     Dates: start: 20140728, end: 20140806
  4. CIPROFLOXACIN. [Suspect]
     Active Substance: CIPROFLOXACIN
     Indication: GENITAL INFECTION MALE
     Dosage: DAILY DOSE: 500 MG
     Route: 065
     Dates: start: 20140722, end: 20140806
  5. DEXKETOPROFEN [Suspect]
     Active Substance: DEXKETOPROFEN
     Indication: PRODUCT USED FOR UNKNOWN INDICATION
     Dosage: UNK
     Route: 065
     Dates: start: 20140722, end: 20140806

REACTIONS (6)
  - Transaminases increased [Recovered/Resolved]
  - Gamma-glutamyltransferase increased [None]
  - Rash generalised [Recovered/Resolved]
  - Alanine aminotransferase increased [None]
  - Aspartate aminotransferase increased [None]
  - Angioedema [Recovered/Resolved]

NARRATIVE: CASE EVENT DATE: 20140804
